FAERS Safety Report 6336828-0 (Version None)
Quarter: 2009Q3

REPORT INFORMATION
  Report Type: 
  Country: None (occurrence: None)
  Receive Date: 20090828
  Receipt Date: 20090828
  Transmission Date: 20100115
  Serious: Yes (Disabling)
  Sender: FDA-Public Use
  Company Number: None

PATIENT
  Age: 78 Year
  Sex: Female
  Weight: 43.5453 kg

DRUGS (14)
  1. HYDROMORPHONE HCL [Suspect]
     Indication: PAIN
     Dosage: 2MG Q4 HOURS IV BOLUS
     Route: 040
     Dates: start: 20090826, end: 20090826
  2. EZETIMIBE [Concomitant]
  3. FLUTICASONE ORAL INHALER [Concomitant]
  4. HYDROCHLOROTHIAZIDE [Concomitant]
  5. LEVOFLOXACIN [Concomitant]
  6. LISINOPRIL [Concomitant]
  7. METRONIDAZOLE [Concomitant]
  8. IVPB [Concomitant]
  9. PANTOPRAZOLE SODIUM [Concomitant]
  10. POTASSIUM CHLORIDE [Concomitant]
  11. RALOXIFENE HCL [Concomitant]
  12. SIMVASTATIN [Concomitant]
  13. MULTI-VITAMIN [Concomitant]
  14. ACETAMINOPHEN [Concomitant]

REACTIONS (5)
  - ANXIETY [None]
  - BLOOD PRESSURE DIASTOLIC DECREASED [None]
  - DYSPNOEA [None]
  - HYPERHIDROSIS [None]
  - RESPIRATORY RATE INCREASED [None]
